FAERS Safety Report 11194759 (Version 2)
Quarter: 2015Q2

REPORT INFORMATION
  Report Type: Spontaneous
  Country: CA (occurrence: CA)
  Receive Date: 20150617
  Receipt Date: 20150623
  Transmission Date: 20150821
  Serious: Yes (Life-Threatening, Other)
  Sender: FDA-Public Use
  Company Number: CA-TAKEDA-2015TJP010713

PATIENT
  Age: 65 Year
  Sex: Female

DRUGS (5)
  1. REMERON [Concomitant]
     Active Substance: MIRTAZAPINE
     Dosage: DAILY DOSE NOT REPORTED.
     Route: 048
  2. IMOVANE [Concomitant]
     Active Substance: ZOPICLONE
     Dosage: DAILY DOSE NOT REPORTED.
     Route: 048
  3. ATIVAN [Concomitant]
     Active Substance: LORAZEPAM
     Dosage: DAILY DOSE NOT REPORTED.
     Route: 048
  4. LYRICA [Concomitant]
     Active Substance: PREGABALIN
     Dosage: DAILY DOSE NOT REPORTED.
     Route: 048
  5. TRINTELLIX [Suspect]
     Active Substance: VORTIOXETINE
     Indication: MAJOR DEPRESSION
     Dosage: 20 MG, QD
     Route: 048
     Dates: start: 20150325

REACTIONS (1)
  - Suicide attempt [Unknown]
